FAERS Safety Report 10340723 (Version 3)
Quarter: 2014Q3

REPORT INFORMATION
  Report Type: Spontaneous
  Country: JP (occurrence: JP)
  Receive Date: 20140724
  Receipt Date: 20140813
  Transmission Date: 20150326
  Serious: Yes (Hospitalization)
  Sender: FDA-Public Use
  Company Number: JP-009507513-1407JPN009235

PATIENT
  Age: 64 Year
  Sex: Female
  Weight: 34 kg

DRUGS (9)
  1. MAXIPIME [Concomitant]
     Active Substance: CEFEPIME HYDROCHLORIDE
     Indication: FEBRILE NEUTROPENIA
     Dosage: 2 G, BID
     Route: 051
     Dates: start: 20140605, end: 20140611
  2. CANCIDAS [Suspect]
     Active Substance: CASPOFUNGIN ACETATE
     Indication: FEBRILE NEUTROPENIA
     Dosage: 70 MG, QD
     Route: 041
     Dates: start: 20140606, end: 20140606
  3. OMEPRAZOLE. [Concomitant]
     Active Substance: OMEPRAZOLE
     Indication: PROPHYLAXIS AGAINST GASTROINTESTINAL ULCER
     Dosage: 20 MG, BID
     Route: 051
     Dates: start: 20140606
  4. FLUCONAZOLE. [Concomitant]
     Active Substance: FLUCONAZOLE
     Indication: FEBRILE NEUTROPENIA
     Dosage: 200 MG, DIVIDED DOSE FREQUENCY UNKNOWN
     Route: 048
     Dates: start: 20140524, end: 20140605
  5. ELNEOPA NO. 2 [Concomitant]
     Active Substance: UNSPECIFIED INGREDIENT
     Indication: MALNUTRITION
     Dosage: 1 DF, QD
     Route: 051
     Dates: start: 20140606
  6. NEUTROGIN [Concomitant]
     Active Substance: LENOGRASTIM
     Indication: NEUTROPHIL COUNT DECREASED
     Dosage: 200 MICROGRAM, QD
     Route: 051
     Dates: start: 20140607, end: 20140613
  7. NEO-MINOPHAGEN C [Concomitant]
     Active Substance: AMMONIUM GLYCYRRHIZATE
     Indication: PROPHYLAXIS
     Dosage: 40 ML, QD
     Route: 051
     Dates: start: 20140606, end: 20140619
  8. ANTINEOPLASTIC (UNSPECIFIED) [Concomitant]
     Active Substance: UNSPECIFIED INGREDIENT
  9. CANCIDAS [Suspect]
     Active Substance: CASPOFUNGIN ACETATE
     Indication: FEBRILE NEUTROPENIA
     Dosage: 50 MG, QD
     Route: 041
     Dates: start: 20140607, end: 20140618

REACTIONS (2)
  - Malnutrition [Recovered/Resolved]
  - Engraftment syndrome [Recovered/Resolved]

NARRATIVE: CASE EVENT DATE: 20140606
